FAERS Safety Report 10175782 (Version 1)
Quarter: 2014Q2

REPORT INFORMATION
  Report Type: Spontaneous
  Country: US (occurrence: None)
  Receive Date: 20140425
  Receipt Date: 20140425
  Transmission Date: 20141212
  Serious: No
  Sender: FDA-Public Use
  Company Number: AP356-00559-SPO-US

PATIENT
  Sex: Female
  Weight: 81.82 kg

DRUGS (1)
  1. BELVIQ [Suspect]
     Indication: WEIGHT DECREASED
     Dosage: UNKNOWN, UNKNOWN, ORAL  UNKNOWN - UNKNOWN THERAPY DATES
     Route: 048

REACTIONS (1)
  - Drug ineffective [None]
